FAERS Safety Report 9155134 (Version 1)
Quarter: 2013Q1

REPORT INFORMATION
  Report Type: Spontaneous
  Country: US (occurrence: US)
  Receive Date: 20130311
  Receipt Date: 20130311
  Transmission Date: 20140127
  Serious: Yes (Hospitalization)
  Sender: FDA-Public Use
  Company Number: US-ROCHE-1199717

PATIENT
  Age: 29 Year
  Sex: Female

DRUGS (2)
  1. PERJETA [Suspect]
     Indication: BREAST CANCER METASTATIC
     Route: 042
     Dates: start: 20130212
  2. PERJETA [Suspect]
     Route: 040
     Dates: start: 20130307, end: 20130307

REACTIONS (3)
  - Chills [Unknown]
  - Staphylococcal infection [Unknown]
  - Chest pain [Unknown]
